FAERS Safety Report 7935471-7 (Version None)
Quarter: 2011Q4

REPORT INFORMATION
  Report Type: 
  Country: None (occurrence: None)
  Receive Date: 20111123
  Receipt Date: 20111115
  Transmission Date: 20120403
  Serious: Yes (Other)
  Sender: FDA-Public Use
  Company Number: US-US-EMD SERONO, INC.-7096693

PATIENT
  Sex: Male
  Weight: 43 kg

DRUGS (4)
  1. XOPENEX [Concomitant]
     Indication: ASTHMA
  2. SAIZEN [Suspect]
     Indication: GROWTH HORMONE DEFICIENCY
     Dates: start: 20110920, end: 20111115
  3. ADVAIR DISKUS 100/50 [Concomitant]
     Indication: ASTHMA
  4. ASTELIN [Concomitant]
     Indication: ASTHMA

REACTIONS (1)
  - PANCREATITIS ACUTE [None]
